FAERS Safety Report 21594926 (Version 2)
Quarter: 2023Q1

REPORT INFORMATION
  Report Type: Spontaneous
  Country: US (occurrence: US)
  Receive Date: 20221115
  Receipt Date: 20230213
  Transmission Date: 20230418
  Serious: Yes (Other)
  Sender: FDA-Public Use
  Company Number: US-PFIZER INC-202201070605

PATIENT
  Age: 66 Year
  Sex: Female

DRUGS (4)
  1. XELJANZ XR [Suspect]
     Active Substance: TOFACITINIB CITRATE
     Dosage: 11 MG, UNK
     Dates: start: 202204
  2. XELJANZ XR [Suspect]
     Active Substance: TOFACITINIB CITRATE
     Dosage: 11 MG, UNK
     Dates: start: 202204
  3. PREDNISONE [Concomitant]
     Active Substance: PREDNISONE
     Dosage: UNK
  4. TIZANIDINE [Concomitant]
     Active Substance: TIZANIDINE
     Dosage: UNK

REACTIONS (7)
  - Rheumatoid arthritis [Unknown]
  - Spinal stenosis [Unknown]
  - Drug ineffective [Unknown]
  - COVID-19 [Unknown]
  - Peripheral swelling [Unknown]
  - Inflammation [Unknown]
  - Localised infection [Unknown]

NARRATIVE: CASE EVENT DATE: 20220901
